FAERS Safety Report 10015781 (Version 11)
Quarter: 2015Q1

REPORT INFORMATION
  Report Type: Spontaneous
  Country: US (occurrence: US)
  Receive Date: 20140317
  Receipt Date: 20150316
  Transmission Date: 20150720
  Serious: Yes (Hospitalization, Other)
  Sender: FDA-Public Use
  Company Number: US-GLAXOSMITHKLINE-A1059488A

PATIENT
  Age: 50 Year
  Sex: Male

DRUGS (10)
  1. FLOLAN [Suspect]
     Active Substance: EPOPROSTENOL SODIUM
     Indication: PULMONARY HYPERTENSION
     Dosage: UNK
     Dates: start: 20140103
  2. FLOLAN [Suspect]
     Active Substance: EPOPROSTENOL SODIUM
     Dosage: UNK
     Dates: start: 20140103
  3. FLOLAN [Suspect]
     Active Substance: EPOPROSTENOL SODIUM
     Dosage: UNK
     Dates: start: 20140103
  4. REVATIO [Concomitant]
     Active Substance: SILDENAFIL CITRATE
  5. FLOLAN [Suspect]
     Active Substance: EPOPROSTENOL SODIUM
     Dosage: 26 NG/KG/MIN CONTINUOUSLY
     Dates: start: 20131231
  6. FLOLAN [Suspect]
     Active Substance: EPOPROSTENOL SODIUM
     Dosage: UNK
     Dates: start: 20140103
  7. OPSUMIT [Concomitant]
     Active Substance: MACITENTAN
  8. FLOLAN [Suspect]
     Active Substance: EPOPROSTENOL SODIUM
     Indication: COR PULMONALE CHRONIC
     Dosage: 7 NG/KG/MIN CONTINUOUSLY, AT CONCENTRATION OF 10,000 NG/ML AND VIAL STRENGTH OF 0.5 MG.6 NG/KG/[...]
     Route: 042
     Dates: start: 20140103
  9. FLOLAN [Suspect]
     Active Substance: EPOPROSTENOL SODIUM
     Dosage: UNK
     Dates: start: 20140103
  10. FLOLAN [Suspect]
     Active Substance: EPOPROSTENOL SODIUM
     Dosage: UNK
     Dates: start: 20140103

REACTIONS (13)
  - Pyrexia [Not Recovered/Not Resolved]
  - Hospitalisation [Unknown]
  - Device related infection [Recovered/Resolved]
  - Pain in extremity [Not Recovered/Not Resolved]
  - Back pain [Not Recovered/Not Resolved]
  - Application site irritation [Unknown]
  - Application site erythema [Unknown]
  - Application site pruritus [Unknown]
  - Insomnia [Unknown]
  - Chills [Not Recovered/Not Resolved]
  - Application site rash [Unknown]
  - Infusion site pain [Not Recovered/Not Resolved]
  - Lung transplant [Unknown]

NARRATIVE: CASE EVENT DATE: 20140313
